FAERS Safety Report 4883713-7 (Version None)
Quarter: 2006Q1

REPORT INFORMATION
  Report Type: 
  Country: None (occurrence: None)
  Receive Date: 20060113
  Receipt Date: 20051227
  Transmission Date: 20060701
  Serious: Yes (Other)
  Sender: FDA-Public Use
  Company Number: US200512004274

PATIENT
  Sex: Female

DRUGS (6)
  1. EVISTA [Suspect]
     Indication: OSTEOPOROSIS
     Dates: start: 20021201
  2. FORTEO [Suspect]
     Indication: OSTEOPOROSIS
     Dates: start: 20051221
  3. FORTEO [Concomitant]
  4. CALCIUM (CALCIUM) [Concomitant]
  5. VITAMIN D [Concomitant]
  6. CENTRUM (MINTERALS NOS, VITAMINS NOS) [Concomitant]

REACTIONS (4)
  - BONE DENSITY DECREASED [None]
  - COMPRESSION FRACTURE [None]
  - DRUG INEFFECTIVE [None]
  - INJECTION SITE ERYTHEMA [None]
